FAERS Safety Report 9461456 (Version 1)
Quarter: 2013Q3

REPORT INFORMATION
  Report Type: Report from Study
  Country: US (occurrence: US)
  Receive Date: 20130816
  Receipt Date: 20130816
  Transmission Date: 20140515
  Serious: No
  Sender: FDA-Public Use
  Company Number: PHEH2011US06817

PATIENT
  Sex: Female

DRUGS (3)
  1. TASIGNA [Suspect]
     Indication: CHRONIC MYELOID LEUKAEMIA
     Dosage: 300 MG, BID
     Route: 048
     Dates: start: 20110719
  2. TASIGNA [Suspect]
     Dosage: 150 MG DAILY
     Route: 048
  3. TASIGNA [Suspect]
     Dosage: UNK UKN, UNK
     Route: 048

REACTIONS (7)
  - Somnolence [Unknown]
  - Hot flush [Unknown]
  - Fatigue [Unknown]
  - Asthenia [Unknown]
  - Malaise [Unknown]
  - Drug intolerance [Unknown]
  - Incorrect dose administered [Unknown]
